FAERS Safety Report 7135263-5 (Version None)
Quarter: 2010Q4

REPORT INFORMATION
  Report Type: 
  Country: None (occurrence: None)
  Receive Date: 20101203
  Receipt Date: 20101123
  Transmission Date: 20110411
  Serious: Yes (Hospitalization)
  Sender: FDA-Public Use
  Company Number: A0861496B

PATIENT
  Sex: Female
  Weight: 68.1 kg

DRUGS (3)
  1. PAZOPANIB [Suspect]
     Indication: RENAL CELL CARCINOMA
     Dosage: 200MG PER DAY
     Route: 048
     Dates: start: 20100714
  2. BEVACIZUMAB [Suspect]
     Indication: RENAL CELL CARCINOMA
     Dosage: 10MGK TWO TIMES PER WEEK
     Route: 042
     Dates: start: 20100601
  3. BISPHOSPHONATES (NOS) [Suspect]

REACTIONS (1)
  - OSTEONECROSIS OF JAW [None]
